FAERS Safety Report 25165320 (Version 1)
Quarter: 2025Q2

REPORT INFORMATION
  Report Type: Spontaneous
  Country: US (occurrence: None)
  Receive Date: 20250407
  Receipt Date: 20250407
  Transmission Date: 20250716
  Serious: No
  Sender: ENCUBE ETHICALS
  Company Number: US-Encube-001708

PATIENT
  Age: 86 Year
  Sex: Male

DRUGS (4)
  1. KETOCONAZOLE [Suspect]
     Active Substance: KETOCONAZOLE
     Indication: Fungal infection
     Dosage: USED ONCE
     Dates: start: 20250320, end: 20250320
  2. METOPROLOL [Concomitant]
     Active Substance: METOPROLOL
  3. XARELTO [Concomitant]
     Active Substance: RIVAROXABAN
  4. ATORVASTATIN [Concomitant]
     Active Substance: ATORVASTATIN

REACTIONS (1)
  - Application site pain [Unknown]

NARRATIVE: CASE EVENT DATE: 20250301
